FAERS Safety Report 13541829 (Version 1)
Quarter: 2017Q2

REPORT INFORMATION
  Report Type: Spontaneous
  Country: US (occurrence: US)
  Receive Date: 20170512
  Receipt Date: 20170512
  Transmission Date: 20170830
  Serious: No
  Sender: FDA-Public Use
  Company Number: US-PERRIGO-17US002660

PATIENT
  Sex: Male
  Weight: 58.96 kg

DRUGS (2)
  1. TRIAMCINOLONE ACETONIDE. [Suspect]
     Active Substance: TRIAMCINOLONE ACETONIDE
     Dosage: 1 THIN FILM, BID
     Route: 061
     Dates: start: 2016, end: 201607
  2. TRIAMCINOLONE ACETONIDE. [Suspect]
     Active Substance: TRIAMCINOLONE ACETONIDE
     Indication: MILIARIA
     Dosage: 1 THIN FILM, BID
     Route: 061
     Dates: start: 201511, end: 201601

REACTIONS (7)
  - Application site urticaria [Recovered/Resolved]
  - Application site discharge [Recovered/Resolved]
  - Application site erythema [Not Recovered/Not Resolved]
  - Application site pain [Not Recovered/Not Resolved]
  - Application site pruritus [Not Recovered/Not Resolved]
  - Condition aggravated [Recovered/Resolved]
  - Application site swelling [Not Recovered/Not Resolved]

NARRATIVE: CASE EVENT DATE: 201511
